FAERS Safety Report 6963777-7 (Version None)
Quarter: 2010Q3

REPORT INFORMATION
  Report Type: 
  Country: None (occurrence: None)
  Receive Date: 20100902
  Receipt Date: 20100822
  Transmission Date: 20110219
  Serious: Yes (Other)
  Sender: FDA-Public Use
  Company Number: CA-WATSON-2010-11359

PATIENT
  Age: 67 Year
  Sex: Female

DRUGS (1)
  1. FIORINAL [Suspect]
     Indication: TENSION HEADACHE
     Dosage: UNK
     Route: 065

REACTIONS (1)
  - RENAL FAILURE [None]
